FAERS Safety Report 6316455-1 (Version None)
Quarter: 2009Q3

REPORT INFORMATION
  Report Type: 
  Country: None (occurrence: None)
  Receive Date: 20090819
  Receipt Date: 20090819
  Transmission Date: 20100115
  Serious: Yes (Other)
  Sender: FDA-Public Use
  Company Number: None

PATIENT
  Age: 62 Year
  Sex: Female
  Weight: 62.5964 kg

DRUGS (1)
  1. KAPIDEX [Suspect]
     Indication: GASTRITIS
     Dosage: ONCE A DAY
     Dates: start: 20090417, end: 20090521

REACTIONS (7)
  - ARRHYTHMIA [None]
  - BRADYCARDIA [None]
  - CHEST PAIN [None]
  - DEPRESSION [None]
  - FATIGUE [None]
  - SUPRAVENTRICULAR EXTRASYSTOLES [None]
  - WEIGHT INCREASED [None]
